FAERS Safety Report 9540767 (Version 1)
Quarter: 2013Q3

REPORT INFORMATION
  Report Type: Spontaneous
  Country: US (occurrence: US)
  Receive Date: 20130920
  Receipt Date: 20130920
  Transmission Date: 20140515
  Serious: Yes (Other)
  Sender: FDA-Public Use
  Company Number: US-B.I. PHARMACEUTICALS,INC./RIDGEFIELD-2013-BI-28965BP

PATIENT
  Age: 90 Year
  Sex: Male

DRUGS (2)
  1. JENTADUETO [Suspect]
     Indication: TYPE 2 DIABETES MELLITUS
     Dosage: STRENGTH: 2.5 MG / 1000 MG; DAILY DOSE: 5MG/2000/MG
     Route: 048
     Dates: start: 201308, end: 201308
  2. 10 TO 15 CONCOMITANT MEDICATIONS [Concomitant]

REACTIONS (1)
  - Pancreatic carcinoma metastatic [Not Recovered/Not Resolved]
